FAERS Safety Report 18562597 (Version 1)
Quarter: 2020Q4

REPORT INFORMATION
  Report Type: Spontaneous
  Country: US (occurrence: US)
  Receive Date: 20201130
  Receipt Date: 20201130
  Transmission Date: 20210114
  Serious: No
  Sender: FDA-Public Use
  Company Number: US-ROCHE-2551911

PATIENT

DRUGS (1)
  1. LUCENTIS [Suspect]
     Active Substance: RANIBIZUMAB
     Indication: THROMBOSIS
     Route: 065

REACTIONS (4)
  - Intentional product use issue [Unknown]
  - Vision blurred [Unknown]
  - Pigmentation disorder [Unknown]
  - Off label use [Unknown]
